FAERS Safety Report 4623850-5 (Version None)
Quarter: 2005Q1

REPORT INFORMATION
  Report Type: 
  Country: None (occurrence: None)
  Receive Date: 20050331
  Receipt Date: 20050328
  Transmission Date: 20050727
  Serious: Yes (Hospitalization)
  Sender: FDA-Public Use
  Company Number: 200512494US

PATIENT
  Sex: Male
  Weight: 100 kg

DRUGS (2)
  1. LOVENOX [Suspect]
     Dosage: DOSE: NOT PROVIDED
  2. COUMADIN [Concomitant]
     Dosage: DOSE: NOT PROVIDED

REACTIONS (9)
  - ATELECTASIS [None]
  - CREATININE RENAL CLEARANCE DECREASED [None]
  - FIBRIN D DIMER INCREASED [None]
  - INTERNATIONAL NORMALISED RATIO DECREASED [None]
  - LOSS OF CONSCIOUSNESS [None]
  - NAUSEA [None]
  - PHARMACEUTICAL PRODUCT COUNTERFEIT [None]
  - PROTHROMBIN TIME PROLONGED [None]
  - VOMITING [None]
